FAERS Safety Report 13415991 (Version 3)
Quarter: 2017Q2

REPORT INFORMATION
  Report Type: Report from Study
  Country: FR (occurrence: FR)
  Receive Date: 20170407
  Receipt Date: 20170421
  Transmission Date: 20170830
  Serious: Yes (Death)
  Sender: FDA-Public Use
  Company Number: FR-PFIZER INC-2017131101

PATIENT
  Age: 35 Year
  Sex: Male

DRUGS (10)
  1. MODIODAL [Concomitant]
     Active Substance: MODAFINIL
     Indication: CATAPLEXY
  2. MOPRAL /00661201/ [Concomitant]
     Active Substance: OMEPRAZOLE SODIUM
     Indication: GASTROOESOPHAGEAL REFLUX DISEASE
     Dosage: UNK
     Dates: end: 20170328
  3. SKENAN [Concomitant]
     Active Substance: MORPHINE SULFATE
     Indication: PAIN
     Dosage: 60 MG, 2X/DAY (IN THE MORNING AND IN THE EVENING)
     Route: 048
     Dates: start: 20170311, end: 20170328
  4. PRIMPERAN [Concomitant]
     Active Substance: METOCLOPRAMIDE HYDROCHLORIDE
     Indication: VOMITING
     Dosage: UNK
     Dates: start: 201703
  5. ANAFRANIL [Concomitant]
     Active Substance: CLOMIPRAMINE HYDROCHLORIDE
     Indication: CATAPLEXY
     Dosage: UNK
     Dates: end: 20170328
  6. ACTISKENAN [Concomitant]
     Active Substance: MORPHINE SULFATE
     Indication: PAIN
     Dosage: 30 MG, AS NEEDED
  7. CRIZOTINIB [Suspect]
     Active Substance: CRIZOTINIB
     Indication: NON-SMALL CELL LUNG CANCER
     Dosage: 250 MG, 2X/DAY(IN THE MORNING AND IN THE EVENING)
     Dates: start: 20170308
  8. ANAFRANIL [Concomitant]
     Active Substance: CLOMIPRAMINE HYDROCHLORIDE
     Indication: NARCOLEPSY
  9. MODIODAL [Concomitant]
     Active Substance: MODAFINIL
     Indication: NARCOLEPSY
     Dosage: UNK
     Dates: end: 20170328
  10. TAXOTERE [Concomitant]
     Active Substance: DOCETAXEL
     Dosage: 145 MG, UNK
     Dates: start: 20161217

REACTIONS (1)
  - Neoplasm progression [Fatal]

NARRATIVE: CASE EVENT DATE: 20170323
